FAERS Safety Report 23640377 (Version 5)
Quarter: 2024Q4

REPORT INFORMATION
  Report Type: Spontaneous
  Country: JP (occurrence: JP)
  Receive Date: 20240317
  Receipt Date: 20241028
  Transmission Date: 20250114
  Serious: Yes (Hospitalization)
  Sender: AMGEN
  Company Number: JP-KISSEI-TV20240184_P_1

PATIENT
  Age: 64 Year
  Sex: Male
  Weight: 61 kg

DRUGS (17)
  1. TAVNEOS [Suspect]
     Active Substance: AVACOPAN
     Indication: Anti-neutrophil cytoplasmic antibody positive vasculitis
     Dosage: 30 MILLIGRAM, Q12H
     Route: 048
     Dates: start: 20230603, end: 20230810
  2. PREDNISOLONE [Concomitant]
     Active Substance: PREDNISOLONE
     Indication: Microscopic polyangiitis
     Dosage: 40 MILLIGRAM, QD
     Route: 065
     Dates: start: 20230602
  3. PREDNISOLONE [Concomitant]
     Active Substance: PREDNISOLONE
     Indication: Anti-neutrophil cytoplasmic antibody positive vasculitis
     Dosage: 40 MILLIGRAM, QD
     Dates: start: 2023, end: 2023
  4. PREDNISOLONE [Concomitant]
     Active Substance: PREDNISOLONE
     Dosage: 30 MILLIGRAM, QD
     Dates: start: 2023, end: 2023
  5. PREDNISOLONE [Concomitant]
     Active Substance: PREDNISOLONE
     Dosage: 25 MILLIGRAM, QD
     Dates: start: 2023, end: 2023
  6. PREDNISOLONE [Concomitant]
     Active Substance: PREDNISOLONE
     Dosage: 20 MILLIGRAM, QD
     Dates: start: 2023, end: 2023
  7. PREDNISOLONE [Concomitant]
     Active Substance: PREDNISOLONE
     Dosage: 15 MILLIGRAM, QD
     Dates: start: 2023
  8. RITUXIMAB [Concomitant]
     Active Substance: RITUXIMAB
     Indication: Microscopic polyangiitis
     Dosage: 500 MILLIGRAM, QD
     Route: 040
     Dates: start: 20230607, end: 2023
  9. RITUXIMAB [Concomitant]
     Active Substance: RITUXIMAB
     Indication: Anti-neutrophil cytoplasmic antibody positive vasculitis
     Dosage: 500 MILLIGRAM
     Route: 040
     Dates: start: 2023, end: 2023
  10. RITUXIMAB [Concomitant]
     Active Substance: RITUXIMAB
     Dosage: 500 MILLIGRAM
     Route: 040
     Dates: start: 2023, end: 2023
  11. RITUXIMAB [Concomitant]
     Active Substance: RITUXIMAB
     Dosage: 500 MILLIGRAM
     Route: 040
     Dates: start: 2023, end: 2023
  12. RITUXIMAB [Concomitant]
     Active Substance: RITUXIMAB
     Dosage: 500 MILLIGRAM
     Route: 040
     Dates: start: 2023, end: 2023
  13. SULFAMETHOXAZOLE\TRIMETHOPRIM [Concomitant]
     Active Substance: SULFAMETHOXAZOLE\TRIMETHOPRIM
     Indication: Anti-neutrophil cytoplasmic antibody positive vasculitis
     Dosage: 2 DOSAGE FORM, QD
     Route: 048
     Dates: start: 202305, end: 20230810
  14. LOSARTAN POTASSIUM [Concomitant]
     Active Substance: LOSARTAN POTASSIUM
     Indication: Hypertension
     Dosage: 25 MILLIGRAM, QD
     Route: 048
  15. ALFACALCIDOL [Concomitant]
     Active Substance: ALFACALCIDOL
     Indication: Anti-neutrophil cytoplasmic antibody positive vasculitis
     Dosage: PERORAL MEDICINE
     Route: 048
     Dates: start: 202305
  16. FAMOTIDINE [Concomitant]
     Active Substance: FAMOTIDINE
     Indication: Anti-neutrophil cytoplasmic antibody positive vasculitis
     Dosage: 20 MILLIGRAM, QD
     Dates: start: 202305
  17. ALENDRONATE [Concomitant]
     Active Substance: ALENDRONATE SODIUM
     Indication: Anti-neutrophil cytoplasmic antibody positive vasculitis
     Dosage: 35 MILLIGRAM, QWK
     Route: 048
     Dates: start: 202305, end: 20230810

REACTIONS (1)
  - Liver disorder [Recovered/Resolved]

NARRATIVE: CASE EVENT DATE: 20230810
